FAERS Safety Report 5823270-1 (Version None)
Quarter: 2008Q3

REPORT INFORMATION
  Report Type: 
  Country: None (occurrence: None)
  Receive Date: 20080725
  Receipt Date: 20080724
  Transmission Date: 20090109
  Serious: Yes (Death, Hospitalization)
  Sender: FDA-Public Use
  Company Number: US-BRISTOL-MYERS SQUIBB COMPANY-14276786

PATIENT
  Age: 74 Year
  Sex: Male
  Weight: 54 kg

DRUGS (10)
  1. CARBOPLATIN [Suspect]
     Indication: NON-SMALL CELL LUNG CANCER
     Dosage: 6 DOSAGE FORM = 6 AUC DAY 1 EVERY 21 DAYS. INITIALLY STARTED ON 03-MAR-2008.
     Route: 042
     Dates: start: 20080421, end: 20080421
  2. AVASTIN [Suspect]
     Indication: NON-SMALL CELL LUNG CANCER
     Dosage: INITIAL DOSE WAS STARTED ON 03-MAR-2008.
     Route: 042
     Dates: start: 20080421, end: 20080421
  3. BLINDED: ENZASTAURIN [Suspect]
     Indication: NON-SMALL CELL LUNG CANCER
     Dosage: 3DF=3TAB 3/1D LOADING DOSE 25FEB08, DURATION 1 DAY. 4DF 1/D FROM 26FEB08-06MAY08 DURATION 71 DAYS
     Route: 048
     Dates: start: 20080506, end: 20080506
  4. ALIMTA [Suspect]
     Indication: NON-SMALL CELL LUNG CANCER
     Dosage: INITIAL DOSE WAS STARTED ON 03-MAR-2008.
     Route: 042
     Dates: start: 20080421, end: 20080421
  5. FOLIC ACID [Concomitant]
     Dates: start: 20080225
  6. VITAMIN B-12 [Concomitant]
     Dates: start: 20080225
  7. ATROVENT [Concomitant]
     Indication: EMPHYSEMA
  8. ASPIRIN [Concomitant]
  9. MEGACE [Concomitant]
     Dates: start: 20080324
  10. COMPAZINE [Concomitant]
     Dates: start: 20080408

REACTIONS (2)
  - ANAEMIA [None]
  - RESPIRATORY ARREST [None]
